FAERS Safety Report 5453510-2 (Version None)
Quarter: 2007Q3

REPORT INFORMATION
  Report Type: 
  Country: None (occurrence: None)
  Receive Date: 20070913
  Receipt Date: 20070823
  Transmission Date: 20080115
  Serious: Yes (Death, Hospitalization)
  Sender: FDA-Public Use
  Company Number: 6142 / 6037416

PATIENT
  Age: 59 Year
  Sex: Female

DRUGS (1)
  1. CLARITHROMYCIN [Suspect]
     Indication: ACUTE SINUSITIS
     Dosage: 1000 MG (500MG, 2 IN D)

REACTIONS (17)
  - BRADYCARDIA [None]
  - COMA [None]
  - DYSPNOEA [None]
  - ENCEPHALOPATHY [None]
  - FLUID OVERLOAD [None]
  - HAEMODIALYSIS [None]
  - HAEMORRHAGE [None]
  - HEPATIC FUNCTION ABNORMAL [None]
  - JAUNDICE CHOLESTATIC [None]
  - LETHARGY [None]
  - LOSS OF CONSCIOUSNESS [None]
  - OLIGURIA [None]
  - PETECHIAE [None]
  - PULSE ABSENT [None]
  - RASH MACULAR [None]
  - RENAL FAILURE [None]
  - SKIN EXFOLIATION [None]
